FAERS Safety Report 7691723-X (Version None)
Quarter: 2011Q3

REPORT INFORMATION
  Report Type: 
  Country: None (occurrence: None)
  Receive Date: 20110818
  Receipt Date: 20110811
  Transmission Date: 20111222
  Serious: Yes (Hospitalization)
  Sender: FDA-Public Use
  Company Number: US-GLAXOSMITHKLINE-A0940526A

PATIENT
  Sex: Male

DRUGS (3)
  1. METFORMIN [Concomitant]
     Indication: DIABETES MELLITUS
  2. AVANDIA [Suspect]
     Indication: DIABETES MELLITUS
     Dosage: 4MG TWICE PER DAY
     Route: 048
  3. GLIPIZIDE [Concomitant]
     Indication: DIABETES MELLITUS

REACTIONS (1)
  - CEREBROVASCULAR ACCIDENT [None]
